FAERS Safety Report 11923156 (Version 2)
Quarter: 2016Q1

REPORT INFORMATION
  Report Type: Report from Study
  Country: US (occurrence: US)
  Receive Date: 20160117
  Receipt Date: 20160119
  Transmission Date: 20160526
  Serious: Yes (Other)
  Sender: FDA-Public Use
  Company Number: US-ROCHE-652824

PATIENT

DRUGS (9)
  1. GEMCITABINE [Suspect]
     Active Substance: GEMCITABINE\GEMCITABINE HYDROCHLORIDE
     Indication: PANCREATIC CARCINOMA METASTATIC
  2. CAPECITABINE. [Suspect]
     Active Substance: CAPECITABINE
     Indication: BILE DUCT CANCER
  3. GEMCITABINE [Suspect]
     Active Substance: GEMCITABINE\GEMCITABINE HYDROCHLORIDE
     Indication: NEOPLASM
     Dosage: ON DAYS 1, 8 AND 15 OF 28 DAYS CYCLE
     Route: 042
  4. VANDETANIB. [Suspect]
     Active Substance: VANDETANIB
     Indication: NEOPLASM
     Dosage: 200 MG  DAILY IN 1ARM AND 300 MG DAILY IN 2 ARMS
     Route: 048
  5. VANDETANIB. [Suspect]
     Active Substance: VANDETANIB
     Indication: PANCREATIC CARCINOMA METASTATIC
  6. GEMCITABINE [Suspect]
     Active Substance: GEMCITABINE\GEMCITABINE HYDROCHLORIDE
     Indication: BILE DUCT CANCER
  7. VANDETANIB. [Suspect]
     Active Substance: VANDETANIB
     Indication: BILE DUCT CANCER
  8. CAPECITABINE. [Suspect]
     Active Substance: CAPECITABINE
     Indication: NEOPLASM
     Dosage: ON DAYS 1-21 OF A 28 DAY CYCLE
     Route: 048
  9. CAPECITABINE. [Suspect]
     Active Substance: CAPECITABINE
     Indication: PANCREATIC CARCINOMA METASTATIC

REACTIONS (9)
  - Neutropenia [Unknown]
  - Thrombocytopenia [Unknown]
  - Pulmonary embolism [Unknown]
  - Rash macular [Unknown]
  - Diarrhoea [Unknown]
  - Palmar-plantar erythrodysaesthesia syndrome [Unknown]
  - Mucosal inflammation [Unknown]
  - Deep vein thrombosis [Unknown]
  - Electrocardiogram QT prolonged [Unknown]
